FAERS Safety Report 12389123 (Version 1)
Quarter: 2016Q2

REPORT INFORMATION
  Report Type: Spontaneous
  Country: DE (occurrence: DE)
  Receive Date: 20160520
  Receipt Date: 20160520
  Transmission Date: 20160815
  Serious: Yes (Death, Life-Threatening)
  Sender: FDA-Public Use
  Company Number: DE-OTSUKA-2016_011128

PATIENT
  Age: 66 Year
  Sex: Female
  Weight: 67 kg

DRUGS (1)
  1. DACOGEN [Suspect]
     Active Substance: DECITABINE
     Indication: ACUTE MYELOID LEUKAEMIA
     Dosage: 34 MG, QD (1 IN 1 DAY)
     Route: 042
     Dates: start: 20160205

REACTIONS (2)
  - Diverticular perforation [Fatal]
  - Sepsis [Fatal]

NARRATIVE: CASE EVENT DATE: 20160217
